FAERS Safety Report 7976201-2 (Version None)
Quarter: 2011Q4

REPORT INFORMATION
  Report Type: 
  Country: None (occurrence: None)
  Receive Date: 20111213
  Receipt Date: 20111013
  Transmission Date: 20120403
  Serious: No
  Sender: FDA-Public Use
  Company Number: US-AMGEN-USASP2011053058

PATIENT
  Age: 62 Year
  Sex: Female

DRUGS (1)
  1. ENBREL [Suspect]
     Indication: RHEUMATOID ARTHRITIS
     Dosage: 50 MG, QWK
     Dates: start: 20100322, end: 20111011

REACTIONS (11)
  - PYREXIA [None]
  - WEIGHT DECREASED [None]
  - SINUSITIS [None]
  - MUSCULOSKELETAL STIFFNESS [None]
  - BLOOD GLUCOSE INCREASED [None]
  - DECREASED APPETITE [None]
  - VOMITING [None]
  - URINARY TRACT INFECTION [None]
  - PAROSMIA [None]
  - PAIN IN EXTREMITY [None]
  - DIARRHOEA [None]
